FAERS Safety Report 9628723 (Version 1)
Quarter: 2013Q4

REPORT INFORMATION
  Report Type: Spontaneous
  Country: US (occurrence: US)
  Receive Date: 20131017
  Receipt Date: 20131017
  Transmission Date: 20140711
  Serious: Yes (Death)
  Sender: FDA-Public Use
  Company Number: US-AMGEN-USASP2013072948

PATIENT
  Age: 36 Year
  Sex: Female

DRUGS (2)
  1. NEULASTA [Suspect]
     Indication: LUNG NEOPLASM MALIGNANT
     Dosage: 6 MG, 24 HOURS AFTER CHEMO, EVERY 21 DAYS
     Route: 065
     Dates: start: 20130816
  2. CHEMOTHERAPEUTICS [Concomitant]
     Indication: LUNG NEOPLASM MALIGNANT
     Dosage: UNK

REACTIONS (1)
  - Death [Fatal]
